FAERS Safety Report 22332340 (Version 1)
Quarter: 2023Q2

REPORT INFORMATION
  Report Type: Spontaneous
  Country: US (occurrence: None)
  Receive Date: 20230516
  Receipt Date: 20230516
  Transmission Date: 20230722
  Serious: Yes (Life-Threatening, Hospitalization)
  Sender: FDA-Public Use
  Company Number: None

PATIENT
  Age: 85 Year
  Sex: Male
  Weight: 98.1 kg

DRUGS (2)
  1. LUMASON [Suspect]
     Active Substance: SULFUR HEXAFLUORIDE
     Indication: Ultrasound scan
     Dates: start: 20230508, end: 20230508
  2. LUMASON [Concomitant]
     Active Substance: SULFUR HEXAFLUORIDE
     Dates: start: 20230508, end: 20230508

REACTIONS (9)
  - Pruritus [None]
  - Dyspnoea [None]
  - Tachypnoea [None]
  - Anxiety [None]
  - Rash [None]
  - Use of accessory respiratory muscles [None]
  - Wheezing [None]
  - Pallor [None]
  - Contrast media reaction [None]

NARRATIVE: CASE EVENT DATE: 20230508
